FAERS Safety Report 4511361-7 (Version None)
Quarter: 2004Q4

REPORT INFORMATION
  Report Type: 
  Country: None (occurrence: None)
  Receive Date: 20041122
  Receipt Date: 20041111
  Transmission Date: 20050328
  Serious: Yes (Hospitalization)
  Sender: FDA-Public Use
  Company Number: 061-0981-M0000027

PATIENT
  Age: 60 Year
  Sex: Male
  Weight: 83 kg

DRUGS (6)
  1. ATORVASTATIN            (ATORVASTATIN) [Suspect]
     Indication: HYPERLIPIDAEMIA
     Dosage: 10 MG OR 80 MG (1 IN 1 D), ORAL
     Route: 048
     Dates: start: 19990305, end: 19990504
  2. ATORVASTATIN            (ATORVASTATIN) [Suspect]
     Indication: HYPERLIPIDAEMIA
     Dosage: 10 MG OR 80 MG (1 IN 1 D), ORAL
     Route: 048
     Dates: start: 19990505
  3. RAMIPRIL [Concomitant]
  4. ASPIRIN [Concomitant]
  5. TOCOPHEROL CONCENTRATE CAP [Concomitant]
  6. CITALOPRAM HYDROBROMDE            (CITALOPRAM HYDROBROMIDE) [Concomitant]

REACTIONS (3)
  - ABDOMINAL PAIN UPPER [None]
  - POLYPECTOMY [None]
  - POST PROCEDURAL HAEMORRHAGE [None]
